FAERS Safety Report 23674430 (Version 3)
Quarter: 2024Q2

REPORT INFORMATION
  Report Type: Spontaneous
  Country: US (occurrence: US)
  Receive Date: 20240326
  Receipt Date: 20240617
  Transmission Date: 20240716
  Serious: No
  Sender: FDA-Public Use
  Company Number: US-SA-SAC20240322000383

PATIENT
  Age: 63 Year
  Sex: Female

DRUGS (1)
  1. DUPIXENT [Suspect]
     Active Substance: DUPILUMAB
     Indication: Asthma
     Dosage: 300 MG, QOW
     Route: 058

REACTIONS (8)
  - Cough [Unknown]
  - Dyspnoea [Unknown]
  - Bronchitis [Unknown]
  - Condition aggravated [Unknown]
  - Sinusitis [Unknown]
  - Rhinorrhoea [Unknown]
  - Upper respiratory tract congestion [Unknown]
  - Drug ineffective [Unknown]
